FAERS Safety Report 8116530-5 (Version None)
Quarter: 2012Q1

REPORT INFORMATION
  Report Type: 
  Country: None (occurrence: None)
  Receive Date: 20120206
  Receipt Date: 20120125
  Transmission Date: 20120608
  Serious: Yes (Other)
  Sender: FDA-Public Use
  Company Number: IL-NOVOPROD-343822

PATIENT
  Age: 19 Year
  Sex: Male

DRUGS (3)
  1. VICTOZA [Suspect]
     Indication: OBESITY
     Dosage: UNK
     Route: 065
     Dates: start: 20100725
  2. SIMVASTATIN [Concomitant]
  3. ASPIRIN [Concomitant]

REACTIONS (1)
  - ATRIAL FIBRILLATION [None]
